FAERS Safety Report 5840513-9 (Version None)
Quarter: 2008Q3

REPORT INFORMATION
  Report Type: 
  Country: None (occurrence: None)
  Receive Date: 20080807
  Receipt Date: 20080807
  Transmission Date: 20090109
  Serious: No
  Sender: FDA-Public Use
  Company Number: None

PATIENT
  Age: 44 Year
  Sex: Female
  Weight: 77.1115 kg

DRUGS (1)
  1. ADVAIR DISKUS 250/50 [Suspect]
     Indication: ASTHMA
     Dosage: ONE PUFF IN MORNING AND NIGHT
     Dates: start: 20050210, end: 20060115

REACTIONS (2)
  - CANDIDIASIS [None]
  - LEUKOPLAKIA [None]
